FAERS Safety Report 26052569 (Version 1)
Quarter: 2025Q4

REPORT INFORMATION
  Report Type: Spontaneous
  Country: US (occurrence: US)
  Receive Date: 20251117
  Receipt Date: 20251117
  Transmission Date: 20260118
  Serious: Yes (Death, Other)
  Sender: Onesource Specialty Pharma
  Company Number: US-STRIDES ARCOLAB LIMITED-2025OS001192

PATIENT
  Age: 8 Decade
  Sex: Female

DRUGS (11)
  1. ETOPOSIDE [Suspect]
     Active Substance: ETOPOSIDE
     Indication: Adenocarcinoma
     Dosage: UNK
     Route: 065
     Dates: start: 2023
  2. ETOPOSIDE [Suspect]
     Active Substance: ETOPOSIDE
     Indication: Adenocarcinoma of appendix
  3. CARBOPLATIN [Suspect]
     Active Substance: CARBOPLATIN
     Indication: Adenocarcinoma of appendix
     Dosage: UNK
     Route: 065
     Dates: start: 2023
  4. CARBOPLATIN [Suspect]
     Active Substance: CARBOPLATIN
     Indication: Adenocarcinoma
  5. CAPECITABINE [Concomitant]
     Active Substance: CAPECITABINE
     Indication: Adenocarcinoma of appendix
     Dosage: UNK, 1 CYCLE
     Route: 065
  6. CAPECITABINE [Concomitant]
     Active Substance: CAPECITABINE
     Dosage: UNK, 7 CYCLES
     Route: 065
  7. OXALIPLATIN [Concomitant]
     Active Substance: OXALIPLATIN
     Indication: Adenocarcinoma of appendix
     Dosage: UNK, 1 CYCLE
     Route: 065
  8. ENCORAFENIB [Concomitant]
     Active Substance: ENCORAFENIB
     Indication: Adenocarcinoma of appendix
     Dosage: UNK
     Route: 065
     Dates: start: 202308, end: 202311
  9. ENCORAFENIB [Concomitant]
     Active Substance: ENCORAFENIB
     Indication: Adenocarcinoma
  10. CETUXIMAB [Concomitant]
     Active Substance: CETUXIMAB
     Indication: Adenocarcinoma of appendix
     Dosage: UNK
     Route: 065
     Dates: start: 202308, end: 202311
  11. CETUXIMAB [Concomitant]
     Active Substance: CETUXIMAB
     Indication: Adenocarcinoma

REACTIONS (1)
  - Drug ineffective for unapproved indication [Fatal]

NARRATIVE: CASE EVENT DATE: 20231201
